FAERS Safety Report 8847882 (Version 4)
Quarter: 2013Q2

REPORT INFORMATION
  Report Type: Report from Study
  Country: CA (occurrence: CA)
  Receive Date: 20121018
  Receipt Date: 20130410
  Transmission Date: 20140414
  Serious: Yes (Other)
  Sender: FDA-Public Use
  Company Number: CA-JNJFOC-20121005982

PATIENT
  Age: 64 Year
  Sex: Male
  Weight: 108.3 kg

DRUGS (7)
  1. REMICADE [Suspect]
     Indication: RHEUMATOID ARTHRITIS
     Route: 042
     Dates: start: 20050627
  2. REMICADE [Suspect]
     Indication: RHEUMATOID ARTHRITIS
     Route: 042
     Dates: start: 20050605
  3. METHOTREXATE [Concomitant]
     Route: 065
  4. STATINS [Concomitant]
     Route: 065
  5. UNKNOWN MEDICATION [Concomitant]
     Route: 065
  6. FOLIC ACID [Concomitant]
     Route: 065
  7. CRESTOR [Concomitant]
     Route: 065

REACTIONS (1)
  - Knee arthroplasty [Unknown]
